FAERS Safety Report 9601566 (Version 1)
Quarter: 2013Q4

REPORT INFORMATION
  Report Type: Spontaneous
  Country: CA (occurrence: CA)
  Receive Date: 20131007
  Receipt Date: 20131007
  Transmission Date: 20140711
  Serious: Yes (Other)
  Sender: FDA-Public Use
  Company Number: CA-ROCHE-1285178

PATIENT
  Sex: Male

DRUGS (5)
  1. XOLAIR [Suspect]
     Indication: ASTHMA
     Route: 058
     Dates: start: 20130917
  2. XOLAIR [Suspect]
     Route: 065
     Dates: start: 20131001
  3. ADVAIR [Concomitant]
  4. SPIRIVA [Concomitant]
  5. VENTOLIN [Concomitant]

REACTIONS (1)
  - Blood pressure increased [Unknown]
